FAERS Safety Report 9509251 (Version 2)
Quarter: 2013Q3

REPORT INFORMATION
  Report Type: Spontaneous
  Country: US (occurrence: US)
  Receive Date: 20130909
  Receipt Date: 20130909
  Transmission Date: 20140515
  Serious: No
  Sender: FDA-Public Use
  Company Number: US-BRISTOL-MYERS SQUIBB COMPANY-17329392

PATIENT
  Age: 6 Year
  Sex: 0

DRUGS (3)
  1. ABILIFY [Suspect]
     Dosage: REDUCED TO 5 MG TWICE A DAY
  2. LEXAPRO [Suspect]
  3. GUANFACINE HYDROCHLORIDE [Suspect]

REACTIONS (10)
  - Tic [Recovering/Resolving]
  - Night sweats [Recovered/Resolved]
  - Weight decreased [Unknown]
  - Depressive symptom [Unknown]
  - Fatigue [Unknown]
  - Corrective lens user [Unknown]
  - Disturbance in attention [Unknown]
  - Somnolence [Unknown]
  - Back pain [Unknown]
  - Enuresis [Recovered/Resolved]
